FAERS Safety Report 26083357 (Version 2)
Quarter: 2025Q4

REPORT INFORMATION
  Report Type: Spontaneous
  Country: JP (occurrence: JP)
  Receive Date: 20251124
  Receipt Date: 20251214
  Transmission Date: 20260118
  Serious: Yes (Death)
  Sender: AMGEN
  Company Number: JP-AMGEN-JPNSP2025228982

PATIENT
  Age: 71 Year
  Sex: Female
  Weight: 65 kg

DRUGS (5)
  1. BEVACIZUMAB [Suspect]
     Active Substance: BEVACIZUMAB
     Indication: Hepatocellular carcinoma
     Dosage: UNK, (DRIP INFUSION)
     Route: 040
  2. AMLODIPINE [Concomitant]
     Active Substance: AMLODIPINE BESYLATE
     Dosage: 5 MILLIGRAM, QD
  3. MITIGLINIDE [Concomitant]
     Active Substance: MITIGLINIDE
     Dosage: 20 MILLIGRAM, QD
  4. MIGLITOL [Concomitant]
     Active Substance: MIGLITOL
     Dosage: 150 MILLIGRAM, QD
  5. ATEZOLIZUMAB [Concomitant]
     Active Substance: ATEZOLIZUMAB
     Indication: Hepatocellular carcinoma

REACTIONS (3)
  - Hepatocellular carcinoma [Fatal]
  - Drug effective for unapproved indication [Unknown]
  - Off label use [Unknown]
